FAERS Safety Report 25791050 (Version 1)
Quarter: 2025Q3

REPORT INFORMATION
  Report Type: Spontaneous
  Country: US (occurrence: None)
  Receive Date: 20250910
  Receipt Date: 20250910
  Transmission Date: 20251021
  Serious: No
  Sender: FDA-CTU
  Company Number: None

PATIENT

DRUGS (1)
  1. PREDNISONE [Suspect]
     Active Substance: PREDNISONE

REACTIONS (5)
  - Hypoaesthesia [None]
  - Peroneal nerve palsy [None]
  - Brain fog [None]
  - Sensory loss [None]
  - Ankle fracture [None]
